FAERS Safety Report 5361554-4 (Version None)
Quarter: 2007Q2

REPORT INFORMATION
  Report Type: 
  Country: None (occurrence: None)
  Receive Date: 20070619
  Receipt Date: 20070612
  Transmission Date: 20071010
  Serious: Yes (Hospitalization)
  Sender: FDA-Public Use
  Company Number: PHNR2007AU01237

PATIENT
  Age: 51 Year
  Sex: Male

DRUGS (7)
  1. VOLTAREN [Suspect]
     Route: 048
     Dates: start: 20061031, end: 20061105
  2. FLOXACILLIN SODIUM [Concomitant]
  3. CEFTRIAXONE [Concomitant]
  4. PANTOPRAZOLE SODIUM [Concomitant]
  5. PARACETAMOL [Concomitant]
  6. OXYCONTIN [Concomitant]
  7. TRAMADOL HCL [Concomitant]

REACTIONS (2)
  - POST PROCEDURAL INFECTION [None]
  - RENAL FAILURE ACUTE [None]
